FAERS Safety Report 5741303-8 (Version None)
Quarter: 2008Q2

REPORT INFORMATION
  Report Type: 
  Country: None (occurrence: None)
  Receive Date: 20080515
  Receipt Date: 20080507
  Transmission Date: 20081010
  Serious: Yes (Hospitalization)
  Sender: FDA-Public Use
  Company Number: ABIAI-08-0104

PATIENT
  Age: 56 Year
  Sex: Female
  Weight: 52 kg

DRUGS (14)
  1. ABRAXANE [Suspect]
     Indication: BREAST CANCER METASTATIC
     Dosage: 400 MG (3 WK), INTRAVENOUS; 340 MG, INTRAVENOUS; 320 MG, INTRAVENOUS
     Route: 042
     Dates: start: 20080204, end: 20080204
  2. ABRAXANE [Suspect]
     Indication: BREAST CANCER METASTATIC
     Dosage: 400 MG (3 WK), INTRAVENOUS; 340 MG, INTRAVENOUS; 320 MG, INTRAVENOUS
     Route: 042
     Dates: start: 20080225, end: 20080225
  3. ABRAXANE [Suspect]
     Indication: BREAST CANCER METASTATIC
     Dosage: 400 MG (3 WK), INTRAVENOUS; 340 MG, INTRAVENOUS; 320 MG, INTRAVENOUS
     Route: 042
     Dates: start: 20080317
  4. HERCEPTIN [Concomitant]
  5. XANAX [Concomitant]
  6. PRILOSEC [Concomitant]
  7. FOLIC ACID [Concomitant]
  8. TENORMIN [Concomitant]
  9. COUMADIN [Concomitant]
  10. REGLAN [Concomitant]
  11. LISINOPRIL [Concomitant]
  12. NORVASC [Concomitant]
  13. MAGNESIUM (MAGNESIUM) [Concomitant]
  14. MIRTAZAPINE [Concomitant]

REACTIONS (3)
  - BALANCE DISORDER [None]
  - CONVULSION [None]
  - LEUKOENCEPHALOPATHY [None]
